FAERS Safety Report 4585699-1 (Version None)
Quarter: 2005Q1

REPORT INFORMATION
  Report Type: 
  Country: None (occurrence: None)
  Receive Date: 20050217
  Receipt Date: 20050209
  Transmission Date: 20050727
  Serious: Yes (Other)
  Sender: FDA-Public Use
  Company Number: PHBS2005JP02241

PATIENT
  Age: 32 Year
  Sex: 0

DRUGS (1)
  1. TEGRETOL [Suspect]
     Dosage: 400 MG/DAY
     Route: 048

REACTIONS (3)
  - GAMMA-GLUTAMYLTRANSFERASE INCREASED [None]
  - PANCYTOPENIA [None]
  - SINUS ARREST [None]
